FAERS Safety Report 9664376 (Version 1)
Quarter: 2013Q4

REPORT INFORMATION
  Report Type: Spontaneous
  Country: US (occurrence: None)
  Receive Date: 20131030
  Receipt Date: 20131030
  Transmission Date: 20140711
  Serious: No
  Sender: FDA-Public Use
  Company Number: None

PATIENT
  Age: 68 Year
  Sex: Female
  Weight: 80.5 kg

DRUGS (4)
  1. AVASTIN [Suspect]
     Dosage: EVERY TWO WEEKS 15MG/KG
     Route: 042
     Dates: start: 200909, end: 201305
  2. ZALTRAP [Suspect]
     Dosage: EVERY TWO WEEKS 4MG/KG
     Route: 042
     Dates: start: 201306
  3. FLOFRI (LEUVOCOVORIN, IRONOTECAN) [Concomitant]
  4. PRADEXA [Concomitant]

REACTIONS (3)
  - Mental status changes [None]
  - Convulsion [None]
  - Leukoencephalopathy [None]
